FAERS Safety Report 8269709-6 (Version None)
Quarter: 2012Q2

REPORT INFORMATION
  Report Type: 
  Country: None (occurrence: None)
  Receive Date: 20120405
  Receipt Date: 20120323
  Transmission Date: 20120825
  Serious: Yes (Hospitalization)
  Sender: FDA-Public Use
  Company Number: UTC-015994

PATIENT
  Age: 56 Year
  Sex: Female
  Weight: 92 kg

DRUGS (9)
  1. DIURETICS (DIURETICS) [Concomitant]
  2. COUMADIN [Concomitant]
  3. REMODULIN [Suspect]
     Indication: PULMONARY HYPERTENSION
     Dosage: 93.6 UG/KG (0.065 UG/KG, 1 IN 1 MIN), SUBCUTANEOUS, 86.4 UG/KG (0.06 UG/KG, 1 IN 1 MIN), SUBCUTANEOU
     Route: 058
     Dates: start: 20110802
  4. REMODULIN [Suspect]
     Indication: PULMONARY ARTERIAL HYPERTENSION
     Dosage: 93.6 UG/KG (0.065 UG/KG, 1 IN 1 MIN), SUBCUTANEOUS, 86.4 UG/KG (0.06 UG/KG, 1 IN 1 MIN), SUBCUTANEOU
     Route: 058
     Dates: start: 20110802
  5. REMODULIN [Suspect]
     Indication: PULMONARY HYPERTENSION
     Dosage: 93.6 UG/KG (0.065 UG/KG, 1 IN 1 MIN), SUBCUTANEOUS, 86.4 UG/KG (0.06 UG/KG, 1 IN 1 MIN), SUBCUTANEOU
     Route: 058
     Dates: start: 20110802
  6. REMODULIN [Suspect]
     Indication: PULMONARY ARTERIAL HYPERTENSION
     Dosage: 93.6 UG/KG (0.065 UG/KG, 1 IN 1 MIN), SUBCUTANEOUS, 86.4 UG/KG (0.06 UG/KG, 1 IN 1 MIN), SUBCUTANEOU
     Route: 058
     Dates: start: 20110802
  7. DIGOXIN [Concomitant]
  8. REVATIO [Concomitant]
  9. LETAIRIS [Concomitant]

REACTIONS (1)
  - PULMONARY OEDEMA [None]
